FAERS Safety Report 9287973 (Version 1)
Quarter: 2013Q2

REPORT INFORMATION
  Report Type: Spontaneous
  Country: CH (occurrence: None)
  Receive Date: 20130506
  Receipt Date: 20130506
  Transmission Date: 20140414
  Serious: Yes (Life-Threatening, Hospitalization, Other)
  Sender: FDA-Public Use
  Company Number: 2013P1005232

PATIENT
  Age: 31 Year
  Sex: Male
  Weight: 67 kg

DRUGS (4)
  1. ESCITALOPRAM [Suspect]
  2. ONDANSETRON [Suspect]
     Indication: NAUSEA
     Route: 042
  3. ONDANSETRON [Suspect]
     Indication: ABDOMINAL PAIN UPPER
     Route: 042
  4. METHADONE [Suspect]
     Indication: DRUG WITHDRAWAL MAINTENANCE THERAPY
     Route: 048

REACTIONS (13)
  - Nausea [None]
  - Abdominal pain upper [None]
  - C-reactive protein increased [None]
  - Faecaloma [None]
  - Choking [None]
  - Unresponsive to stimuli [None]
  - Electrocardiogram T wave inversion [None]
  - Grand mal convulsion [None]
  - Hypomagnesaemia [None]
  - Hypokalaemia [None]
  - Torsade de pointes [None]
  - Ventricular hypokinesia [None]
  - Stress cardiomyopathy [None]
